FAERS Safety Report 5700912-2 (Version None)
Quarter: 2008Q2

REPORT INFORMATION
  Report Type: 
  Country: None (occurrence: None)
  Receive Date: 20080410
  Receipt Date: 20080403
  Transmission Date: 20081010
  Serious: Yes (Other)
  Sender: FDA-Public Use
  Company Number: B0491459A

PATIENT
  Age: 52 Year
  Sex: Female
  Weight: 83.2 kg

DRUGS (1)
  1. AROPAX [Suspect]
     Indication: DEPRESSION
     Dates: start: 20030121, end: 20071010

REACTIONS (5)
  - ANXIETY [None]
  - CRYING [None]
  - EMOTIONAL DISTRESS [None]
  - PARAESTHESIA [None]
  - VISION BLURRED [None]
